FAERS Safety Report 16996999 (Version 1)
Quarter: 2019Q4

REPORT INFORMATION
  Report Type: Spontaneous
  Country: US (occurrence: US)
  Receive Date: 20190924
  Receipt Date: 20190924
  Transmission Date: 20200122
  Serious: No
  Sender: FDA-Public Use
  Company Number: None

PATIENT
  Age: 67 Week
  Sex: Female
  Weight: 84.82 kg

DRUGS (2)
  1. BENLYSTA [Suspect]
     Active Substance: BELIMUMAB
     Indication: SYSTEMIC LUPUS ERYTHEMATOSUS
     Dosage: ?          OTHER FREQUENCY:1HR WEEK0,2 AND4;?
     Route: 042
     Dates: start: 201903
  2. BENLYSTA [Suspect]
     Active Substance: BELIMUMAB
     Indication: ARTHRALGIA
     Dosage: ?          OTHER FREQUENCY:1HR WEEK0,2 AND4;?
     Route: 042
     Dates: start: 201903

REACTIONS (2)
  - Blood disorder [None]
  - Malaise [None]
